FAERS Safety Report 11084095 (Version 2)
Quarter: 2015Q2

REPORT INFORMATION
  Report Type: Spontaneous
  Country: US (occurrence: US)
  Receive Date: 20150502
  Receipt Date: 20150526
  Transmission Date: 20150821
  Serious: No
  Sender: FDA-Public Use
  Company Number: US-JNJFOC-20121114158

PATIENT
  Age: 50 Year
  Sex: Female
  Weight: 68.04 kg

DRUGS (3)
  1. ORTHO EVRA [Suspect]
     Active Substance: ETHINYL ESTRADIOL\NORELGESTROMIN
     Indication: MENOPAUSAL SYMPTOMS
     Dosage: STARTED 3 OR 4 YEARS AGO
     Route: 062
  2. STATINS NOS [Suspect]
     Active Substance: UNSPECIFIED INGREDIENT
     Indication: BLOOD CHOLESTEROL INCREASED
     Route: 065
  3. ORTHO EVRA [Suspect]
     Active Substance: ETHINYL ESTRADIOL\NORELGESTROMIN
     Indication: HORMONE LEVEL ABNORMAL
     Dosage: STARTED 3 OR 4 YEARS AGO
     Route: 062

REACTIONS (4)
  - Product use issue [Not Recovered/Not Resolved]
  - Musculoskeletal disorder [Recovered/Resolved]
  - Blood cholesterol increased [Not Recovered/Not Resolved]
  - Product adhesion issue [Unknown]

NARRATIVE: CASE EVENT DATE: 20121120
